FAERS Safety Report 16264195 (Version 3)
Quarter: 2019Q2

REPORT INFORMATION
  Report Type: Spontaneous
  Country: US (occurrence: US)
  Receive Date: 20190502
  Receipt Date: 20190613
  Transmission Date: 20190711
  Serious: Yes (Hospitalization, Other)
  Sender: FDA-Public Use
  Company Number: US-GLAXOSMITHKLINE-US2019076724

PATIENT
  Sex: Female

DRUGS (2)
  1. BENLYSTA [Suspect]
     Active Substance: BELIMUMAB
     Indication: PRODUCT USED FOR UNKNOWN INDICATION
     Dosage: UNK
     Route: 058
  2. BENLYSTA [Suspect]
     Active Substance: BELIMUMAB
     Indication: PRODUCT USED FOR UNKNOWN INDICATION
     Dosage: UNK
     Route: 042
     Dates: start: 2016, end: 201901

REACTIONS (15)
  - Pruritus [Unknown]
  - Insomnia [Unknown]
  - Musculoskeletal chest pain [Not Recovered/Not Resolved]
  - Device related infection [Unknown]
  - Swelling [Unknown]
  - Pyrexia [Recovered/Resolved]
  - Staphylococcal infection [Recovered/Resolved]
  - Sepsis [Unknown]
  - Systemic lupus erythematosus [Unknown]
  - Catheter removal [Unknown]
  - Urticaria [Unknown]
  - Erythema [Unknown]
  - Pain [Unknown]
  - Therapeutic product effect incomplete [Unknown]
  - Back pain [Recovering/Resolving]
